FAERS Safety Report 9367191 (Version 1)
Quarter: 2013Q2

REPORT INFORMATION
  Report Type: Spontaneous
  Country: US (occurrence: US)
  Receive Date: 20130625
  Receipt Date: 20130625
  Transmission Date: 20140414
  Serious: No
  Sender: FDA-Public Use
  Company Number: US-ASTELLAS-2012US006085

PATIENT
  Age: 61 Year
  Sex: Female
  Weight: 72 kg

DRUGS (12)
  1. VESICARE [Suspect]
     Indication: URGE INCONTINENCE
     Dosage: 5 MG, UID/QD
     Route: 048
     Dates: start: 20120601
  2. VESICARE [Suspect]
     Indication: POLLAKIURIA
     Dosage: 10 MG, UID/QD
     Route: 048
     Dates: start: 20120630, end: 20120630
  3. VESICARE [Suspect]
     Dosage: 5 MG, BID
     Route: 048
     Dates: start: 201205
  4. PROZAC [Concomitant]
     Indication: DEPRESSION
     Dosage: 20 MG, UID/QD
     Route: 048
  5. PRAVASTATIN [Concomitant]
     Indication: PRODUCT USED FOR UNKNOWN INDICATION
     Dosage: 40 MG, UID/QD
     Route: 048
  6. NORTRIPTYLINE [Concomitant]
     Indication: PRODUCT USED FOR UNKNOWN INDICATION
     Dosage: 20 MG, UID/QD
     Route: 048
  7. DURAGESIC                          /00174601/ [Concomitant]
     Indication: PAIN MANAGEMENT
     Dosage: 1 DF, Q3D
     Route: 062
  8. CHLORZOXAZONE [Concomitant]
     Indication: PRODUCT USED FOR UNKNOWN INDICATION
     Dosage: 500 MG, UID/QD
     Route: 048
  9. LUNESTA [Concomitant]
     Indication: SLEEP DISORDER
     Dosage: 1 MG, QHS
     Route: 048
  10. DIAZEPAM [Concomitant]
     Indication: MUSCLE SPASMS
     Dosage: 10 MG, BID
     Route: 048
  11. OXYBUTYNIN [Concomitant]
     Indication: MICTURITION URGENCY
     Dosage: UNK
     Route: 065
     Dates: start: 201108
  12. OXYBUTYNIN [Concomitant]
     Indication: POLLAKIURIA

REACTIONS (7)
  - Drug ineffective [Unknown]
  - Wrong technique in drug usage process [Unknown]
  - Inappropriate schedule of drug administration [Unknown]
  - Inappropriate schedule of drug administration [Unknown]
  - Bladder spasm [Unknown]
  - Nocturia [Unknown]
  - Urinary tract infection [Unknown]
